FAERS Safety Report 15566016 (Version 2)
Quarter: 2019Q1

REPORT INFORMATION
  Report Type: Spontaneous
  Country: GB (occurrence: GB)
  Receive Date: 20181030
  Receipt Date: 20190201
  Transmission Date: 20190417
  Serious: Yes (Death, Other)
  Sender: FDA-Public Use
  Company Number: GB-PFIZER INC-2018441292

PATIENT
  Age: 41 Year
  Sex: Male

DRUGS (10)
  1. MORPHINE [Suspect]
     Active Substance: MORPHINE
  2. OMEPRAZOLE. [Suspect]
     Active Substance: OMEPRAZOLE
     Dosage: UNK
  3. MIRTAZAPINE. [Suspect]
     Active Substance: MIRTAZAPINE
     Dosage: UNK
  4. THIAMINE. [Suspect]
     Active Substance: THIAMINE
     Dosage: UNK
  5. PREGABALIN. [Suspect]
     Active Substance: PREGABALIN
     Dosage: UNK
  6. METHADONE [Suspect]
     Active Substance: METHADONE HYDROCHLORIDE
     Dosage: UNK
  7. SERTRALINE HCL [Suspect]
     Active Substance: SERTRALINE HYDROCHLORIDE
     Dosage: UNK
  8. DIAZEPAM. [Suspect]
     Active Substance: DIAZEPAM
     Dosage: UNK
  9. NAPROXEN. [Suspect]
     Active Substance: NAPROXEN
     Dosage: UNK
  10. LACTULOSE. [Suspect]
     Active Substance: LACTULOSE
     Dosage: UNK

REACTIONS (4)
  - Respiratory depression [Fatal]
  - Lower respiratory tract infection [Fatal]
  - Epistaxis [Unknown]
  - Toxicity to various agents [Fatal]
